FAERS Safety Report 17353904 (Version 1)
Quarter: 2020Q1

REPORT INFORMATION
  Report Type: Spontaneous
  Country: PL (occurrence: PL)
  Receive Date: 20200131
  Receipt Date: 20200131
  Transmission Date: 20200409
  Serious: Yes (Other)
  Sender: FDA-Public Use
  Company Number: PL-TEVA-2020-PL-1177150

PATIENT
  Age: 56 Year
  Sex: Female

DRUGS (3)
  1. CYCLOPHOSPHAMIDE. [Suspect]
     Active Substance: CYCLOPHOSPHAMIDE
     Indication: OVARIAN CANCER
     Dosage: UNK
     Route: 042
  2. PACLITAXEL. [Suspect]
     Active Substance: PACLITAXEL
     Indication: OVARIAN CANCER
     Dosage: UNK
     Route: 042
  3. CISPLATIN. [Suspect]
     Active Substance: CISPLATIN
     Indication: OVARIAN CANCER
     Dosage: UNK
     Route: 042

REACTIONS (19)
  - Middle insomnia [Unknown]
  - Alanine aminotransferase increased [Unknown]
  - Feeling abnormal [Recovered/Resolved]
  - Carpal tunnel syndrome [Unknown]
  - Sleep disorder [Unknown]
  - Peripheral sensory neuropathy [Unknown]
  - Somnolence [Unknown]
  - Intervertebral disc disorder [Unknown]
  - Hypoaesthesia [Recovered/Resolved]
  - Fatigue [Unknown]
  - Erythema [Unknown]
  - Paraesthesia [Recovered/Resolved]
  - Median nerve injury [Unknown]
  - Insomnia [Unknown]
  - Gamma-glutamyltransferase increased [Unknown]
  - Aspartate aminotransferase increased [Unknown]
  - Discomfort [Unknown]
  - Small fibre neuropathy [Unknown]
  - Cough [Unknown]
